FAERS Safety Report 8911931 (Version 1)
Quarter: 2012Q4

REPORT INFORMATION
  Report Type: 
  Country: US (occurrence: US)
  Receive Date: 20121116
  Receipt Date: 20121116
  Transmission Date: 20130627
  Serious: Yes (Hospitalization, Other)
  Sender: FDA-Public Use
  Company Number: US-GENZYME-CLOF-1002330

PATIENT
  Age: 17 Year
  Sex: Male
  Weight: 59.9 kg

DRUGS (23)
  1. CLOLAR [Suspect]
     Indication: LYMPHOCYTIC LEUKAEMIA
     Dosage: UNK, Consolidation phase
     Route: 065
     Dates: start: 20120529, end: 20120602
  2. CLOLAR [Suspect]
     Dosage: 30 mg/m2, qd (consolidation part 2)
     Route: 065
     Dates: start: 20120703, end: 20120707
  3. CYCLOPHOSPHAMIDE [Suspect]
     Indication: LYMPHOCYTIC LEUKAEMIA
     Dosage: UNK, Consolidation phase
     Route: 065
     Dates: start: 20120529, end: 20120602
  4. CYCLOPHOSPHAMIDE [Suspect]
     Dosage: 440 mg/m2, qd (consolidation part 2)
     Route: 065
     Dates: start: 20120703, end: 20120707
  5. ETOPOSIDE [Suspect]
     Indication: LYMPHOCYTIC LEUKAEMIA
     Dosage: UNK, Consolidation phase
     Route: 065
     Dates: start: 20120529, end: 20120602
  6. ETOPOSIDE [Suspect]
     Dosage: 100 mg/m2, qd (consolidation part)
     Route: 065
     Dates: start: 20120703, end: 20120707
  7. PEG-L-ASPARAGINASE [Suspect]
     Indication: LYMPHOCYTIC LEUKAEMIA
     Dosage: 2500 mg/m2, qd (consolidation part 2)
     Route: 065
     Dates: start: 20120717, end: 20120717
  8. VINCRISTINE [Suspect]
     Indication: LYMPHOCYTIC LEUKAEMIA
     Dosage: 1.5 mg/m2, once
     Route: 065
     Dates: start: 20120717, end: 20120717
  9. VINCRISTINE [Suspect]
     Dosage: 1.5 mg/m2, Once,  consolidation part 2
     Route: 065
     Dates: start: 20120724, end: 20120724
  10. BACTRIM [Concomitant]
     Indication: PRODUCT USED FOR UNKNOWN INDICATION
     Dosage: 4 DF, 3x/w (2 tablets in the morning and 2 tablets at night)
     Route: 065
  11. OMEPRAZOLE [Concomitant]
     Indication: PRODUCT USED FOR UNKNOWN INDICATION
     Dosage: UNK
     Route: 048
  12. BENADRYL [Concomitant]
     Indication: URTICARIA
     Dosage: UNK
     Route: 065
  13. TYLENOL [Concomitant]
     Indication: URTICARIA
     Dosage: UNK
     Route: 065
  14. FIORICET [Concomitant]
     Indication: HEADACHE
     Dosage: 1 DF, tid  (every 6 hours prn)
     Route: 048
  15. ZOFRAN [Concomitant]
     Indication: NAUSEA
     Dosage: 1 DF, tid (every 8 hours prn)
     Route: 048
  16. ZOFRAN [Concomitant]
     Indication: VOMITING
  17. MIRALAX [Concomitant]
     Indication: CONSTIPATION
     Dosage: 1 DF, qd (prn)
     Route: 048
  18. SENNA [Concomitant]
     Indication: CONSTIPATION
     Dosage: 2 DF, qd (prn)
  19. COLACE [Concomitant]
     Indication: PRODUCT USED FOR UNKNOWN INDICATION
     Dosage: UNK
     Route: 048
  20. SCOPOLAMINE [Concomitant]
     Indication: NAUSEA
     Dosage: UNK
     Route: 065
  21. SCOPOLAMINE [Concomitant]
     Indication: VOMITING
  22. COMPAZINE [Concomitant]
     Indication: NAUSEA
     Dosage: UNK (every 8 hours prn)
     Route: 048
  23. COMPAZINE [Concomitant]
     Indication: VOMITING

REACTIONS (14)
  - Lung neoplasm [Unknown]
  - Renal disorder [Unknown]
  - Oral herpes [Unknown]
  - Febrile neutropenia [Unknown]
  - Thrombocytopenia [Unknown]
  - Sepsis [Unknown]
  - Blood albumin decreased [Unknown]
  - Mucosal inflammation [Unknown]
  - Anaemia [Unknown]
  - Activated partial thromboplastin time prolonged [Recovered/Resolved]
  - Hypocalcaemia [Recovered/Resolved]
  - Hypotension [Recovered/Resolved]
  - Abdominal infection [Not Recovered/Not Resolved]
  - Lung infection [Not Recovered/Not Resolved]
